FAERS Safety Report 20898314 (Version 4)
Quarter: 2023Q2

REPORT INFORMATION
  Report Type: Spontaneous
  Country: US (occurrence: US)
  Receive Date: 20220531
  Receipt Date: 20230602
  Transmission Date: 20230721
  Serious: Yes (Disabling)
  Sender: FDA-Public Use
  Company Number: US-SA-SAC20220527001384

PATIENT
  Age: 75 Year
  Sex: Female

DRUGS (1)
  1. AUBAGIO [Suspect]
     Active Substance: TERIFLUNOMIDE
     Indication: Multiple sclerosis
     Dosage: 14 MG, QD
     Route: 048
     Dates: start: 20220406

REACTIONS (12)
  - Mobility decreased [Unknown]
  - Urinary incontinence [Unknown]
  - Fatigue [Unknown]
  - Fall [Unknown]
  - Depression [Unknown]
  - Sexual dysfunction [Unknown]
  - Asthenia [Unknown]
  - Sensory disturbance [Unknown]
  - Pain [Unknown]
  - Cognitive disorder [Unknown]
  - Hyperhidrosis [Unknown]
  - Diarrhoea [Unknown]
